FAERS Safety Report 13147578 (Version 1)
Quarter: 2017Q1

REPORT INFORMATION
  Report Type: Spontaneous
  Country: IT (occurrence: IT)
  Receive Date: 20170125
  Receipt Date: 20170125
  Transmission Date: 20170428
  Serious: Yes (Other)
  Sender: FDA-Public Use
  Company Number: IT-SUN PHARMACEUTICAL INDUSTRIES LTD-2017RR-131852

PATIENT
  Age: 52 Year
  Sex: Female
  Weight: 61 kg

DRUGS (2)
  1. OXALIPLATIN. [Suspect]
     Active Substance: OXALIPLATIN
     Indication: ADENOCARCINOMA OF COLON
     Dosage: 110 MG CYCLICAL
     Route: 042
     Dates: start: 20161128, end: 20161229
  2. XELODA [Concomitant]
     Active Substance: CAPECITABINE
     Indication: ADENOCARCINOMA OF COLON
     Dosage: 5 DF
     Route: 048
     Dates: start: 20161128, end: 20161229

REACTIONS (1)
  - Infusion related reaction [Recovering/Resolving]

NARRATIVE: CASE EVENT DATE: 20161229
